FAERS Safety Report 9353938 (Version 4)
Quarter: 2013Q4

REPORT INFORMATION
  Report Type: Spontaneous
  Country: JP (occurrence: JP)
  Receive Date: 20130618
  Receipt Date: 20131220
  Transmission Date: 20140711
  Serious: Yes (Hospitalization, Other)
  Sender: FDA-Public Use
  Company Number: JP-JNJFOC-20130519086

PATIENT
  Age: 65 Year
  Sex: Female

DRUGS (5)
  1. TRAMCET [Suspect]
     Indication: PAIN
     Dosage: 1 PER 1 DAY
     Route: 048
     Dates: start: 20130415, end: 20130415
  2. ENICO [Concomitant]
     Indication: HYPERLIPIDAEMIA
     Dosage: ONCE A DAY
     Route: 048
     Dates: start: 201005
  3. SEFTAC [Concomitant]
     Indication: GASTRITIS
     Dosage: ONCE A DAY
     Route: 048
     Dates: start: 201005
  4. KAMISHOYOSAN [Concomitant]
     Indication: MENOPAUSAL SYMPTOMS
     Dosage: ONCE A DAY
     Route: 048
     Dates: start: 201005
  5. BOFUTSUSHOSAN [Concomitant]
     Indication: OBESITY
     Dosage: ONCE A DAY
     Route: 048
     Dates: start: 201005

REACTIONS (7)
  - Anaphylactic reaction [Recovered/Resolved]
  - Arthralgia [Recovered/Resolved]
  - Dyspnoea [Recovered/Resolved]
  - Chest discomfort [Recovered/Resolved]
  - White blood cell count increased [Recovering/Resolving]
  - Nausea [Recovered/Resolved]
  - C-reactive protein increased [Recovering/Resolving]
